FAERS Safety Report 4513400-6 (Version None)
Quarter: 2004Q4

REPORT INFORMATION
  Report Type: 
  Country: None (occurrence: None)
  Receive Date: 20041130
  Receipt Date: 20040909
  Transmission Date: 20050328
  Serious: Yes (Other)
  Sender: FDA-Public Use
  Company Number: US-BRISTOL-MYERS SQUIBB COMPANY-12698866

PATIENT
  Age: 63 Year
  Sex: Female

DRUGS (4)
  1. ERBITUX [Suspect]
     Indication: COLORECTAL CANCER METASTATIC
     Dosage: MAINTENANCE DOSE. THERAPY DATES: 02-SEP, 09-SEP, 17-SEP + 01-OCT
     Route: 042
     Dates: start: 20040909, end: 20040909
  2. COMPAZINE [Concomitant]
     Indication: NAUSEA
     Route: 048
  3. GLUCOPHAGE [Concomitant]
     Route: 048
  4. LEVOTHROID [Concomitant]
     Route: 048

REACTIONS (1)
  - RASH PRURITIC [None]
